FAERS Safety Report 10655246 (Version 1)
Quarter: 2014Q4

REPORT INFORMATION
  Report Type: Spontaneous
  Country: US (occurrence: US)
  Receive Date: 20141216
  Receipt Date: 20141216
  Transmission Date: 20150529
  Serious: Yes (Hospitalization)
  Sender: FDA-Public Use
  Company Number: US-SHIRE-US201408775

PATIENT
  Age: 72 Year
  Sex: Female
  Weight: 51.9 kg

DRUGS (1)
  1. FIRAZYR [Suspect]
     Active Substance: ICATIBANT ACETATE
     Indication: ANGIOEDEMA
     Dosage: 30 MG, ONE DOSE
     Route: 058
     Dates: start: 20141201

REACTIONS (3)
  - Product use issue [Unknown]
  - Drug ineffective [Unknown]
  - Swollen tongue [Unknown]

NARRATIVE: CASE EVENT DATE: 20141201
